FAERS Safety Report 17767950 (Version 1)
Quarter: 2020Q2

REPORT INFORMATION
  Report Type: Spontaneous
  Country: US (occurrence: US)
  Receive Date: 20200511
  Receipt Date: 20200511
  Transmission Date: 20200714
  Serious: No
  Sender: FDA-Public Use
  Company Number: US-ELI_LILLY_AND_COMPANY-US202005002412

PATIENT
  Sex: Male

DRUGS (5)
  1. INSULIN LISPRO [Concomitant]
     Active Substance: INSULIN LISPRO
     Indication: TYPE 2 DIABETES MELLITUS
  2. BASAGLAR [Suspect]
     Active Substance: INSULIN GLARGINE
     Indication: TYPE 2 DIABETES MELLITUS
     Dosage: 12 U, BID (EACH MORNING AND EVENING)
     Route: 058
     Dates: start: 201909
  3. BASAGLAR [Suspect]
     Active Substance: INSULIN GLARGINE
     Indication: TYPE 2 DIABETES MELLITUS
     Dosage: 12 U, BID (EACH MORNING AND EVENING)
     Route: 058
     Dates: start: 201909
  4. BASAGLAR [Suspect]
     Active Substance: INSULIN GLARGINE
     Dosage: 12 U, BID (EACH MORNING AND EVENING)
     Route: 058
  5. BASAGLAR [Suspect]
     Active Substance: INSULIN GLARGINE
     Dosage: 12 U, BID (EACH MORNING AND EVENING)
     Route: 058

REACTIONS (1)
  - Injection site pain [Unknown]
